FAERS Safety Report 13209295 (Version 4)
Quarter: 2017Q1

REPORT INFORMATION
  Report Type: Spontaneous
  Country: BR (occurrence: BR)
  Receive Date: 20170209
  Receipt Date: 20170331
  Transmission Date: 20170428
  Serious: Yes (Other)
  Sender: FDA-Public Use
  Company Number: PHHY2017BR016796

PATIENT
  Age: 4 Year
  Sex: Female

DRUGS (1)
  1. AMOXICILLIN SODIUM+POTASSIUM CLAVULANATE SANDOZ [Suspect]
     Active Substance: AMOXICILLIN\CLAVULANATE POTASSIUM
     Indication: PHARYNGEAL OEDEMA
     Dosage: 4 ML, Q8H
     Route: 048
     Dates: start: 20170126, end: 20170201

REACTIONS (4)
  - Drug administration error [Not Recovered/Not Resolved]
  - Product colour issue [Not Recovered/Not Resolved]
  - Haematemesis [Not Recovered/Not Resolved]
  - Diarrhoea [Not Recovered/Not Resolved]
